FAERS Safety Report 14184234 (Version 1)
Quarter: 2017Q4

REPORT INFORMATION
  Report Type: Report from Study
  Country: US (occurrence: US)
  Receive Date: 20171113
  Receipt Date: 20171113
  Transmission Date: 20180321
  Serious: Yes (Hospitalization)
  Sender: FDA-Public Use
  Company Number: US-JNJFOC-20170423332

PATIENT
  Age: 76 Year
  Sex: Female

DRUGS (11)
  1. IMBRUVICA [Suspect]
     Active Substance: IBRUTINIB
     Indication: CHRONIC LYMPHOCYTIC LEUKAEMIA
     Route: 048
     Dates: start: 20140828
  2. PRILOSEC [Concomitant]
     Active Substance: OMEPRAZOLE MAGNESIUM
  3. MELATONIN [Concomitant]
     Active Substance: MELATONIN
  4. CALCIUM [Concomitant]
     Active Substance: CALCIUM
  5. IMBRUVICA [Suspect]
     Active Substance: IBRUTINIB
     Indication: CHRONIC LYMPHOCYTIC LEUKAEMIA
     Route: 048
     Dates: start: 20140904
  6. BIFIDOBACTERIUM LACTIS [Concomitant]
     Active Substance: BIFIDOBACTERIUM ANIMALIS LACTIS
  7. PROGESTERONE. [Concomitant]
     Active Substance: PROGESTERONE
  8. MULTIVITAMINS [Concomitant]
     Active Substance: VITAMINS
  9. VESICARE [Concomitant]
     Active Substance: SOLIFENACIN SUCCINATE
  10. ATIVAN [Concomitant]
     Active Substance: LORAZEPAM
  11. MAGNESIUM [Concomitant]
     Active Substance: MAGNESIUM

REACTIONS (5)
  - Spinal osteoarthritis [Recovering/Resolving]
  - Neuropathy peripheral [Unknown]
  - Asthenia [Unknown]
  - Myelopathy [Recovering/Resolving]
  - Pain [Unknown]

NARRATIVE: CASE EVENT DATE: 2016
